FAERS Safety Report 8154452-4 (Version None)
Quarter: 2012Q1

REPORT INFORMATION
  Report Type: 
  Country: None (occurrence: None)
  Receive Date: 20120221
  Receipt Date: 20120211
  Transmission Date: 20120608
  Serious: Yes (Other)
  Sender: FDA-Public Use
  Company Number: CA-MPIJNJ-2012-01012

PATIENT
  Age: 15 Year
  Sex: Female
  Weight: 70.5 kg

DRUGS (6)
  1. CYTARABINE [Suspect]
     Indication: ACUTE MYELOID LEUKAEMIA
     Dosage: 100 MG/M2, BID
     Route: 042
     Dates: start: 20111208, end: 20120113
  2. ETOPOSIDE [Suspect]
     Indication: ACUTE MYELOID LEUKAEMIA
     Dosage: 100 MG/M2, CYCLIC
     Route: 042
     Dates: start: 20111208, end: 20120110
  3. ETOPOSIDE [Suspect]
     Dosage: 150 MG/M2, CYCLIC
     Route: 042
  4. DAUNORUBICIN HYDROCHLORIDE [Suspect]
     Indication: ACUTE MYELOID LEUKAEMIA
     Dosage: 50 MG/M2, CYCLIC
     Route: 042
     Dates: start: 20111208, end: 20120110
  5. VELCADE [Suspect]
     Indication: ACUTE MYELOID LEUKAEMIA
     Dosage: 1.3 MG/M2, CYCLIC
     Route: 040
     Dates: start: 20111208, end: 20120113
  6. CYTARABINE [Suspect]
     Dosage: 1000 MG/M2, BID
     Route: 042

REACTIONS (8)
  - RESPIRATORY RATE INCREASED [None]
  - CARDIAC FUNCTION TEST ABNORMAL [None]
  - HEART RATE INCREASED [None]
  - LUNG INFILTRATION [None]
  - CARBON MONOXIDE DIFFUSING CAPACITY DECREASED [None]
  - ANAEMIA [None]
  - DYSPNOEA [None]
  - BREATH SOUNDS ABNORMAL [None]
